FAERS Safety Report 6865770-1 (Version None)
Quarter: 2010Q3

REPORT INFORMATION
  Report Type: 
  Country: None (occurrence: None)
  Receive Date: 20100721
  Receipt Date: 20091207
  Transmission Date: 20110219
  Serious: No
  Sender: FDA-Public Use
  Company Number: US-PFIZER INC-2008032289

PATIENT
  Sex: Male
  Weight: 111.13 kg

DRUGS (7)
  1. CHANTIX [Suspect]
     Indication: SMOKING CESSATION THERAPY
     Dosage: 1 MG, 2X/DAY
     Route: 048
     Dates: start: 20080301, end: 20080101
  2. CELEBREX [Concomitant]
  3. EFFEXOR [Concomitant]
  4. LISINOPRIL [Concomitant]
  5. CARDIZEM [Concomitant]
  6. ATENOLOL [Concomitant]
  7. ZOCOR [Concomitant]

REACTIONS (8)
  - ABDOMINAL DISCOMFORT [None]
  - BLOOD GLUCOSE INCREASED [None]
  - DIZZINESS [None]
  - HEADACHE [None]
  - INSOMNIA [None]
  - NAUSEA [None]
  - STRESS [None]
  - VOMITING [None]
